FAERS Safety Report 21184991 (Version 1)
Quarter: 2022Q3

REPORT INFORMATION
  Report Type: Spontaneous
  Country: US (occurrence: None)
  Receive Date: 20220807
  Receipt Date: 20220807
  Transmission Date: 20221026
  Serious: Yes (Life-Threatening)
  Sender: FDA-Public Use
  Company Number: None

PATIENT
  Age: 66 Year
  Sex: Female

DRUGS (7)
  1. POLYETHYLENE GLYCOL 3350 [Suspect]
     Active Substance: POLYETHYLENE GLYCOL 3350
     Indication: Constipation
     Dosage: FREQUENCY : AT BEDTIME;?
     Route: 048
     Dates: start: 20220702, end: 20220801
  2. ROSUVASTATIN [Concomitant]
     Active Substance: ROSUVASTATIN
  3. AIMOVIG [Concomitant]
     Active Substance: ERENUMAB-AOOE
  4. REYVOW [Concomitant]
     Active Substance: LASMIDITAN
  5. EFFEXOR [Concomitant]
     Active Substance: VENLAFAXINE HYDROCHLORIDE
  6. MAGNESIUM [Concomitant]
     Active Substance: MAGNESIUM
  7. VIT D3 [Concomitant]

REACTIONS (4)
  - Depression [None]
  - Gastric disorder [None]
  - Middle insomnia [None]
  - Suicidal behaviour [None]

NARRATIVE: CASE EVENT DATE: 20220731
